FAERS Safety Report 8624412-5 (Version None)
Quarter: 2012Q3

REPORT INFORMATION
  Report Type: 
  Country: None (occurrence: None)
  Receive Date: 20120827
  Receipt Date: 20120822
  Transmission Date: 20120928
  Serious: Yes (Life-Threatening, Other)
  Sender: FDA-Public Use
  Company Number: US-ASTRAZENECA-2012SE61203

PATIENT
  Age: 48 Year
  Sex: Female
  Weight: 113.9 kg

DRUGS (13)
  1. PRILOSEC [Suspect]
     Route: 048
  2. PROZAC [Concomitant]
     Dosage: BEFORE NOON
     Route: 048
  3. BUSPAR [Concomitant]
     Indication: GENERALISED ANXIETY DISORDER
     Route: 048
  4. SEROQUEL [Suspect]
     Route: 048
  5. ALBUTEROL [Concomitant]
     Dosage: 90MCG INHALE 2 PUFFS AS DIRECTED EVERY 4 HOURS AS NEEDED
     Route: 055
  6. NAPROSYN [Concomitant]
     Indication: PAIN IN EXTREMITY
     Dosage: 500 MG TWO TIMES DAILY AS NEEDED
     Route: 048
  7. ASPIRIN [Concomitant]
     Dosage: EC TABLET
     Route: 048
  8. FLUTICASONE PROPIONATE [Concomitant]
     Dosage: 100 MCG AS DIRECTED 2 TIMES DAILY
     Route: 055
  9. HYDRODIURIL [Concomitant]
     Route: 048
  10. K DUR/KLOR-CON [Concomitant]
     Indication: HYPOKALAEMIA
     Dosage: 20MEQ BY MOUTH TWO TIMES DAILY
     Route: 048
  11. SEROQUEL [Suspect]
     Dosage: 100MG 1/2 TAB UNTIL MONDAY THEN WHOLE 100 MG
     Route: 048
  12. VISTARIL [Concomitant]
     Route: 048
  13. MULTI-VITAMIN [Concomitant]
     Route: 048

REACTIONS (26)
  - HYPOKALAEMIA [None]
  - PAIN IN EXTREMITY [None]
  - VAGINAL DISCHARGE [None]
  - SUICIDE ATTEMPT [None]
  - SUICIDAL IDEATION [None]
  - HYPERTENSION [None]
  - DEPRESSION [None]
  - DYSMENORRHOEA [None]
  - OBESITY [None]
  - MUSCULOSKELETAL PAIN [None]
  - VITAMIN D DEFICIENCY [None]
  - FATIGUE [None]
  - MIGRAINE [None]
  - PRURITUS [None]
  - COUGH [None]
  - HALLUCINATION [None]
  - SELF INJURIOUS BEHAVIOUR [None]
  - GENERALISED ANXIETY DISORDER [None]
  - GASTROOESOPHAGEAL REFLUX DISEASE [None]
  - NICOTINE DEPENDENCE [None]
  - VAGINAL INFECTION [None]
  - BACTERIAL INFECTION [None]
  - TREATMENT NONCOMPLIANCE [None]
  - OESOPHAGITIS [None]
  - OEDEMA [None]
  - INTENTIONAL DRUG MISUSE [None]
